FAERS Safety Report 10505946 (Version 4)
Quarter: 2015Q2

REPORT INFORMATION
  Report Type: Report from Study
  Country: US (occurrence: US)
  Receive Date: 20141008
  Receipt Date: 20150406
  Transmission Date: 20150821
  Serious: Yes (Hospitalization, Other)
  Sender: FDA-Public Use
  Company Number: US-GILEAD-2014-0116533

PATIENT
  Age: 44 Year
  Sex: Female

DRUGS (3)
  1. VENTAVIS [Concomitant]
     Active Substance: ILOPROST
  2. AMBRISENTAN [Suspect]
     Active Substance: AMBRISENTAN
     Indication: PULMONARY HYPERTENSION
     Dosage: 10 MG, QD
     Route: 065
     Dates: start: 20120706
  3. AMBRISENTAN [Suspect]
     Active Substance: AMBRISENTAN
     Indication: HIV INFECTION

REACTIONS (4)
  - Pulmonary hypertension [Unknown]
  - Joint swelling [Unknown]
  - Acquired immunodeficiency syndrome [Unknown]
  - Gastrointestinal haemorrhage [Unknown]
